FAERS Safety Report 9348758 (Version 2)
Quarter: 2015Q1

REPORT INFORMATION
  Report Type: Report from Study
  Country: US (occurrence: US)
  Receive Date: 20130614
  Receipt Date: 20150225
  Transmission Date: 20150721
  Serious: No
  Sender: FDA-Public Use
  Company Number: US-ASTRAZENECA-2013SE21704

PATIENT
  Age: 856 Month
  Sex: Female

DRUGS (2)
  1. OMEPRAZOLE. [Suspect]
     Active Substance: OMEPRAZOLE
     Indication: GASTROOESOPHAGEAL REFLUX DISEASE
     Route: 048
  2. NEXIUM [Suspect]
     Active Substance: ESOMEPRAZOLE MAGNESIUM
     Dosage: 40 MG, EVERY OTHER DAY
     Route: 048

REACTIONS (6)
  - Drug ineffective [Unknown]
  - Malaise [Not Recovered/Not Resolved]
  - Diarrhoea [Unknown]
  - Intentional product misuse [Unknown]
  - Influenza like illness [Unknown]
  - Muscle spasms [Unknown]

NARRATIVE: CASE EVENT DATE: 201502
